FAERS Safety Report 7684203-9 (Version None)
Quarter: 2011Q3

REPORT INFORMATION
  Report Type: 
  Country: None (occurrence: None)
  Receive Date: 20110815
  Receipt Date: 20110707
  Transmission Date: 20111222
  Serious: Yes (Other)
  Sender: FDA-Public Use
  Company Number: FR-BAYER-2011-059780

PATIENT
  Sex: Male

DRUGS (1)
  1. ULTRAVIST 150 [Suspect]

REACTIONS (1)
  - ACCIDENTAL EXPOSURE [None]
